FAERS Safety Report 7919067-9 (Version None)
Quarter: 2011Q4

REPORT INFORMATION
  Report Type: 
  Country: None (occurrence: None)
  Receive Date: 20111116
  Receipt Date: 20111107
  Transmission Date: 20120403
  Serious: Yes (Other)
  Sender: FDA-Public Use
  Company Number: CA-ASTRAZENECA-2011SE67444

PATIENT
  Age: 71 Year
  Sex: Female

DRUGS (3)
  1. CRESTOR [Suspect]
     Route: 048
  2. RANITIDINE [Concomitant]
     Route: 048
  3. PROPRANOLOL [Concomitant]
     Route: 048

REACTIONS (2)
  - DRY MOUTH [None]
  - PALPITATIONS [None]
